FAERS Safety Report 7648420-6 (Version None)
Quarter: 2011Q3

REPORT INFORMATION
  Report Type: 
  Country: None (occurrence: None)
  Receive Date: 20110801
  Receipt Date: 20110725
  Transmission Date: 20111222
  Serious: Yes (Death, Hospitalization)
  Sender: FDA-Public Use
  Company Number: BR-ABBOTT-11P-020-0696949-00

PATIENT
  Sex: Female
  Weight: 51 kg

DRUGS (6)
  1. HUMIRA [Suspect]
     Indication: CROHN'S DISEASE
     Dosage: INDUCTION DOSE
     Route: 058
     Dates: start: 20101026, end: 20101026
  2. HUMIRA [Suspect]
     Route: 058
     Dates: start: 20101222
  3. AZATHIOPRINE [Concomitant]
     Indication: PRODUCT USED FOR UNKNOWN INDICATION
  4. HUMIRA [Suspect]
     Dosage: INDUCTION DOSE
     Route: 058
  5. MESALAMINE [Concomitant]
     Indication: CROHN'S DISEASE
     Route: 048
  6. PREDNISONE [Concomitant]
     Indication: CROHN'S DISEASE
     Route: 048

REACTIONS (8)
  - FUNGAL SEPSIS [None]
  - HEADACHE [None]
  - CRYPTOCOCCOSIS [None]
  - RESPIRATORY ARREST [None]
  - SINUSITIS [None]
  - PARACOCCIDIOIDES INFECTION [None]
  - PYREXIA [None]
  - CROHN'S DISEASE [None]
